FAERS Safety Report 6435101-X (Version None)
Quarter: 2009Q4

REPORT INFORMATION
  Report Type: 
  Country: None (occurrence: None)
  Receive Date: 20091110
  Receipt Date: 20091030
  Transmission Date: 20100525
  Serious: Yes (Death)
  Sender: FDA-Public Use
  Company Number: US-PFIZER INC-2009276789

PATIENT
  Sex: Female

DRUGS (3)
  1. REVATIO [Suspect]
     Indication: PULMONARY HYPERTENSION
     Dosage: 20 MG, 3X/DAY
     Route: 048
     Dates: start: 20090301
  2. CARDIZEM CD [Concomitant]
     Dosage: 180 MG, 1X/DAY
  3. LISINOPRIL [Concomitant]
     Dosage: 10 MG, UNK

REACTIONS (1)
  - DEATH [None]
